FAERS Safety Report 25928018 (Version 1)
Quarter: 2025Q4

REPORT INFORMATION
  Report Type: Spontaneous
  Country: US (occurrence: US)
  Receive Date: 20251016
  Receipt Date: 20251016
  Transmission Date: 20260117
  Serious: No
  Sender: CSL BEHRING
  Company Number: US-BEH-2025220725

PATIENT
  Age: 9 Year
  Sex: Female
  Weight: 45.351 kg

DRUGS (22)
  1. HIZENTRA [Suspect]
     Active Substance: HUMAN IMMUNOGLOBULIN G
     Indication: Product used for unknown indication
     Dosage: 1 DF
     Route: 065
  2. DUPIXENT [Suspect]
     Active Substance: DUPILUMAB
     Indication: Asthma
     Dosage: 200 MG, QOW
     Route: 058
  3. DUPIXENT [Suspect]
     Active Substance: DUPILUMAB
     Dosage: UNK
     Route: 065
  4. DUPIXENT [Suspect]
     Active Substance: DUPILUMAB
     Dosage: UNK
     Route: 065
  5. DUPIXENT [Suspect]
     Active Substance: DUPILUMAB
     Dosage: UNK
     Route: 065
  6. DUPIXENT [Suspect]
     Active Substance: DUPILUMAB
     Dosage: UNK
     Route: 065
  7. GAMMAGARD [Suspect]
     Active Substance: HUMAN IMMUNOGLOBULIN G
     Indication: Product used for unknown indication
     Route: 065
  8. LIDOCAINE HYDROCHLORIDE [Concomitant]
     Active Substance: LIDOCAINE HYDROCHLORIDE
  9. FLONASE ALLERGY RELIEF [Concomitant]
     Active Substance: FLUTICASONE PROPIONATE
  10. SPIRIVA RESPIMAT [Concomitant]
     Active Substance: TIOTROPIUM BROMIDE
  11. RIZATRIPTAN [Concomitant]
     Active Substance: RIZATRIPTAN
  12. EPINEPHRINE [Concomitant]
     Active Substance: EPINEPHRINE
  13. TOPAMAX [Concomitant]
     Active Substance: TOPIRAMATE
  14. ACETAMINOPHEN [Concomitant]
     Active Substance: ACETAMINOPHEN
  15. DIPHENHYDRAMINE [Concomitant]
     Active Substance: DIPHENHYDRAMINE
  16. ALBUTEROL SULFATE [Concomitant]
     Active Substance: ALBUTEROL SULFATE
  17. TRIAMCINOLONE ACETONIDE [Concomitant]
     Active Substance: TRIAMCINOLONE ACETONIDE
  18. BUDESONIDE [Concomitant]
     Active Substance: BUDESONIDE
  19. MELATONIN [Concomitant]
     Active Substance: MELATONIN
  20. LEVOCETIRIZINE DIHYDROCHLORIDE [Concomitant]
     Active Substance: LEVOCETIRIZINE DIHYDROCHLORIDE
  21. AZITHROMYCIN [Concomitant]
     Active Substance: AZITHROMYCIN
  22. CUVITRU [Concomitant]
     Active Substance: HUMAN IMMUNOGLOBULIN G

REACTIONS (15)
  - Drug hypersensitivity [Unknown]
  - Urticaria [Unknown]
  - Abdominal pain upper [Unknown]
  - Condition aggravated [Unknown]
  - Injection site pain [Unknown]
  - Infusion site rash [Unknown]
  - Infusion site erythema [Unknown]
  - COVID-19 [Unknown]
  - Chills [Unknown]
  - Erythema [Unknown]
  - Skin swelling [Unknown]
  - Pain [Unknown]
  - Skin warm [Recovered/Resolved]
  - Infusion site inflammation [Unknown]
  - Rash [Unknown]

NARRATIVE: CASE EVENT DATE: 20250101
